FAERS Safety Report 5804275-3 (Version None)
Quarter: 2008Q3

REPORT INFORMATION
  Report Type: 
  Country: None (occurrence: None)
  Receive Date: 20080709
  Receipt Date: 20080702
  Transmission Date: 20090109
  Serious: Yes (Hospitalization)
  Sender: FDA-Public Use
  Company Number: DE-WYE-G01790708

PATIENT
  Sex: Male
  Weight: 70 kg

DRUGS (12)
  1. TORISEL [Suspect]
     Indication: METASTATIC RENAL CELL CARCINOMA
     Route: 042
     Dates: start: 20080523, end: 20080627
  2. POTASSIUM CHLORIDE [Concomitant]
     Indication: HYPOKALAEMIA
     Route: 048
     Dates: start: 20080625, end: 20080629
  3. TAMSULOSIN HCL [Concomitant]
     Dosage: 0.4 MG (FREQUENCY UNKNOWN)
  4. ALLOPURINOL [Concomitant]
     Dosage: 100 MG (FREQUENCY UNKNOWN)
  5. PAMIDRONATE DISODIUM [Concomitant]
     Dosage: UNKNOWN
  6. LASIX [Concomitant]
     Dosage: 80 MG (FREQUENCY UNKNOWN)
  7. DECORTIN-H [Concomitant]
     Dosage: 10 MG (FREQUENCY UNKNOWN)
  8. FOLSAN [Concomitant]
     Dosage: 5 MG (FREQUENCY UNKNOWN)
  9. FENISTIL [Concomitant]
     Dosage: UNKNOWN
  10. RANITIDINE HCL [Concomitant]
     Dosage: UNKNOWN
  11. CEFTRIAXONE [Concomitant]
     Indication: URINARY TRACT INFECTION
     Route: 042
     Dates: start: 20080618, end: 20080620
  12. PANTOPRAZOLE SODIUM [Concomitant]
     Dosage: 40 MG (FREQUENCY UNKNOWN)

REACTIONS (3)
  - ANOREXIA [None]
  - DIZZINESS [None]
  - SEPSIS [None]
